FAERS Safety Report 7372408-6 (Version None)
Quarter: 2011Q1

REPORT INFORMATION
  Report Type: 
  Country: None (occurrence: None)
  Receive Date: 20110316
  Receipt Date: 20110228
  Transmission Date: 20110831
  Serious: Yes (Hospitalization, Other)
  Sender: FDA-Public Use
  Company Number: 2009S1006318

PATIENT
  Age: 63 Year
  Sex: Female
  Weight: 72.5755 kg

DRUGS (8)
  1. PHOSPHOSODA FLAVOR NOT SPECIFIED [Suspect]
     Indication: COLONOSCOPY
     Dosage: 2 UNIT; PO
     Route: 048
     Dates: start: 20060125
  2. AMARYL [Concomitant]
  3. LISINOPRIL [Concomitant]
  4. LABETALOL [Concomitant]
  5. LANTUS [Concomitant]
  6. ZOCOR [Concomitant]
  7. HYDROCHLOROTHIAZIDE [Concomitant]
  8. ZETIA [Concomitant]

REACTIONS (14)
  - HYPOVOLAEMIA [None]
  - BLOOD GLUCOSE INCREASED [None]
  - DECREASED APPETITE [None]
  - RENAL FAILURE ACUTE [None]
  - NEPHROLITHIASIS [None]
  - RENAL FAILURE CHRONIC [None]
  - NAUSEA [None]
  - CARDIOMEGALY [None]
  - FATIGUE [None]
  - DIARRHOEA [None]
  - RENAL TUBULAR NECROSIS [None]
  - NEPHROGENIC ANAEMIA [None]
  - VOMITING [None]
  - CARDIAC FAILURE CONGESTIVE [None]
